FAERS Safety Report 4577235-0 (Version None)
Quarter: 2005Q1

REPORT INFORMATION
  Report Type: 
  Country: None (occurrence: None)
  Receive Date: 20050209
  Receipt Date: 20050126
  Transmission Date: 20050727
  Serious: Yes (Death)
  Sender: FDA-Public Use
  Company Number: 2004AL000808

PATIENT
  Age: 53 Year
  Sex: Male

DRUGS (10)
  1. CHLORPROMAZINE HYDROCHLORIDE CONCENTRATE [Suspect]
     Dosage: PO
     Route: 048
  2. METOPROLOL TARTRATE [Suspect]
     Dosage: PO
     Route: 048
  3. AMPHETAMINE [Suspect]
     Dosage: PO
     Route: 048
  4. FLUOXETINE [Suspect]
     Dosage: PO
     Route: 048
  5. TEMAZEPAM [Suspect]
     Dosage: PO
     Route: 048
  6. LOVASTATIN [Suspect]
     Dosage: PO
     Route: 048
  7. CARISOPRODOL [Suspect]
     Dosage: PO
     Route: 048
  8. MORPHINE [Suspect]
     Dosage: PO
     Route: 048
  9. LITHIUM [Suspect]
     Dosage: PO
     Route: 048
  10. LEVOTHYROXINE [Suspect]
     Dosage: PO
     Route: 048

REACTIONS (12)
  - BLOOD CREATINE PHOSPHOKINASE INCREASED [None]
  - BLOOD CREATININE INCREASED [None]
  - CHILLS [None]
  - HYPERHIDROSIS [None]
  - HYPERTENSION [None]
  - HYPERTHERMIA [None]
  - HYPOTENSION [None]
  - METABOLIC ACIDOSIS [None]
  - MULTIPLE DRUG OVERDOSE [None]
  - PYREXIA [None]
  - TACHYCARDIA [None]
  - TREMOR [None]
